FAERS Safety Report 23114918 (Version 7)
Quarter: 2024Q1

REPORT INFORMATION
  Report Type: Spontaneous
  Country: US (occurrence: US)
  Receive Date: 20231027
  Receipt Date: 20240308
  Transmission Date: 20240409
  Serious: No
  Sender: FDA-Public Use
  Company Number: US-GLAXOSMITHKLINE-US2023AMR147376

PATIENT
  Age: 62 Year
  Sex: Female

DRUGS (5)
  1. ZEJULA [Suspect]
     Active Substance: NIRAPARIB
     Indication: Ovarian cancer
     Dosage: 200 MG, QD
     Dates: end: 202311
  2. ZEJULA [Suspect]
     Active Substance: NIRAPARIB
     Dosage: 200 MG, QD
  3. GABAPENTIN [Concomitant]
     Active Substance: GABAPENTIN
     Indication: Product used for unknown indication
     Dosage: UNK
  4. VALSARTAN [Concomitant]
     Active Substance: VALSARTAN
     Indication: Product used for unknown indication
     Dosage: UNK
  5. VALSARTAN [Concomitant]
     Active Substance: VALSARTAN
     Dosage: UNK, (INCREASED DOSE)

REACTIONS (16)
  - Dyspepsia [Unknown]
  - Hypertension [Not Recovered/Not Resolved]
  - Headache [Recovering/Resolving]
  - Vision blurred [Recovering/Resolving]
  - Blood pressure increased [Recovered/Resolved]
  - Fatigue [Not Recovered/Not Resolved]
  - Dry mouth [Unknown]
  - Gastrooesophageal reflux disease [Recovered/Resolved]
  - Nausea [Recovering/Resolving]
  - Anhedonia [Recovered/Resolved]
  - Asthenia [Not Recovered/Not Resolved]
  - Gastrointestinal disorder [Unknown]
  - Product dose omission issue [Unknown]
  - Feeling abnormal [Unknown]
  - Abdominal discomfort [Unknown]
  - Dyspepsia [Unknown]

NARRATIVE: CASE EVENT DATE: 20231001
